FAERS Safety Report 4374831-0 (Version None)
Quarter: 2004Q2

REPORT INFORMATION
  Report Type: 
  Country: None (occurrence: None)
  Receive Date: 20040604
  Receipt Date: 20040526
  Transmission Date: 20050107
  Serious: Yes (Death, Life-Threatening, Hospitalization)
  Sender: FDA-Public Use
  Company Number: 2004-03-1916

PATIENT
  Age: 57 Year
  Sex: Female
  Weight: 64 kg

DRUGS (13)
  1. TEMODAL [Suspect]
     Indication: GLIOBLASTOMA MULTIFORME
     Dosage: 120 MG QD ORAL
     Route: 048
     Dates: start: 20040218, end: 20040322
  2. MEDROL [Suspect]
     Indication: GLIOBLASTOMA MULTIFORME
     Dosage: SEE IMAGE
     Route: 048
     Dates: start: 20040218, end: 20040326
  3. MEDROL [Suspect]
     Indication: GLIOBLASTOMA MULTIFORME
     Dosage: SEE IMAGE
     Route: 048
     Dates: start: 20040218
  4. MEDROL [Suspect]
     Indication: GLIOBLASTOMA MULTIFORME
     Dosage: SEE IMAGE
     Route: 048
     Dates: start: 20040327
  5. DEPAKENE [Suspect]
     Indication: EPILEPSY
     Dosage: 500 MG BID ORAL
     Route: 048
     Dates: start: 20040205, end: 20040316
  6. DEPAKENE [Suspect]
     Indication: PROPHYLAXIS
     Dosage: 500 MG BID ORAL
     Route: 048
     Dates: start: 20040205, end: 20040316
  7. AMBISOME [Suspect]
     Indication: ANTIFUNGAL PROPHYLAXIS
     Dosage: 50-300 MG* INTRAVENOUS
     Route: 042
     Dates: start: 20040401, end: 20040402
  8. AMBISOME [Suspect]
     Indication: ANTIFUNGAL PROPHYLAXIS
     Dosage: 50-300 MG* INTRAVENOUS
     Route: 042
     Dates: start: 20040403, end: 20040404
  9. AMBISOME [Suspect]
     Indication: ANTIFUNGAL PROPHYLAXIS
     Dosage: 50-300 MG* INTRAVENOUS
     Route: 042
     Dates: start: 20040405, end: 20040406
  10. AMBISOME [Suspect]
     Indication: ANTIFUNGAL PROPHYLAXIS
     Dosage: 50-300 MG* INTRAVENOUS
     Route: 042
     Dates: start: 20040407, end: 20040408
  11. AMBISOME [Suspect]
     Indication: ANTIFUNGAL PROPHYLAXIS
     Dosage: 50-300 MG* INTRAVENOUS
     Route: 042
     Dates: start: 20040409, end: 20040410
  12. PHENYTOIN [Suspect]
     Indication: EPILEPSY
     Dosage: 100 MG TID ORAL
     Route: 048
     Dates: start: 20040316, end: 20040401
  13. PHENYTOIN [Suspect]
     Indication: PROPHYLAXIS
     Dosage: 100 MG TID ORAL
     Route: 048
     Dates: start: 20040316, end: 20040401

REACTIONS (5)
  - BONE MARROW TOXICITY [None]
  - HYPOKALAEMIA [None]
  - MALIGNANT NEOPLASM PROGRESSION [None]
  - PANCYTOPENIA [None]
  - PYREXIA [None]
